FAERS Safety Report 13415294 (Version 1)
Quarter: 2017Q2

REPORT INFORMATION
  Report Type: Spontaneous
  Country: CH (occurrence: FI)
  Receive Date: 20170406
  Receipt Date: 20170406
  Transmission Date: 20170830
  Serious: Yes (Hospitalization)
  Sender: FDA-Public Use
  Company Number: CH-LPDUSPRD-20170368

PATIENT
  Age: 77 Year
  Sex: Female

DRUGS (6)
  1. ASACOL [Concomitant]
     Active Substance: MESALAMINE
     Dosage: 500 MG
     Route: 054
  2. LOSATRIX COMP [Concomitant]
     Dosage: DOSE UNKNOWN
     Route: 048
  3. FERINJECT [Suspect]
     Active Substance: FERRIC CARBOXYMALTOSE
     Dosage: 1 GM
     Route: 041
     Dates: start: 20170116, end: 20170116
  4. ORLOC [Concomitant]
     Active Substance: BISOPROLOL FUMARATE
     Dosage: 5MG
     Route: 048
  5. PRIMASPAN [Concomitant]
     Active Substance: ASPIRIN
     Dosage: 100MG
     Route: 048
  6. THYROXIN [Concomitant]
     Active Substance: LEVOTHYROXINE
     Dosage: 25 MCG
     Route: 048

REACTIONS (6)
  - Ear pain [Unknown]
  - Odynophagia [Unknown]
  - Headache [Unknown]
  - Lymphadenopathy [Unknown]
  - Hypersensitivity [Unknown]
  - Swelling face [Unknown]

NARRATIVE: CASE EVENT DATE: 20170116
